APPROVED DRUG PRODUCT: DURYSTA
Active Ingredient: BIMATOPROST
Strength: 10MCG
Dosage Form/Route: IMPLANT;OPHTHALMIC
Application: N211911 | Product #001
Applicant: ABBVIE INC
Approved: Mar 4, 2020 | RLD: Yes | RS: Yes | Type: RX

PATENTS:
Patent 8206737 | Expires: Apr 7, 2027
Patent 9980974 | Expires: Oct 31, 2034
Patent 9492316 | Expires: Oct 31, 2034
Patent 7799336 | Expires: Apr 24, 2029
Patent 8629185 | Expires: Jul 15, 2031
Patent 10441543 | Expires: Dec 19, 2026
Patent 9149428 | Expires: Dec 19, 2026